FAERS Safety Report 7392943-4 (Version None)
Quarter: 2011Q2

REPORT INFORMATION
  Report Type: 
  Country: None (occurrence: None)
  Receive Date: 20110404
  Receipt Date: 20110402
  Transmission Date: 20111010
  Serious: Yes (Death)
  Sender: FDA-Public Use
  Company Number: US-PFIZER INC-2011073368

PATIENT
  Sex: Female
  Weight: 73.469 kg

DRUGS (1)
  1. LYRICA [Suspect]
     Indication: NEUROPATHY PERIPHERAL
     Dosage: 150 MG, UNK
     Route: 048
     Dates: start: 20090101

REACTIONS (3)
  - SWELLING FACE [None]
  - DEATH [None]
  - WEIGHT INCREASED [None]
